FAERS Safety Report 5339855-5 (Version None)
Quarter: 2007Q2

REPORT INFORMATION
  Report Type: 
  Country: None (occurrence: None)
  Receive Date: 20070529
  Receipt Date: 20070521
  Transmission Date: 20071010
  Serious: Yes (Other)
  Sender: FDA-Public Use
  Company Number: 2007SP010027

PATIENT
  Age: 55 Year
  Sex: Female
  Weight: 49 kg

DRUGS (6)
  1. TEMODAL [Suspect]
     Indication: GLIOBLASTOMA MULTIFORME
     Dosage: 100 MG/M2; QD; PO
     Route: 048
     Dates: start: 20070510, end: 20070517
  2. GASTER [Concomitant]
  3. GASMOTIN [Concomitant]
  4. NAUZELIN [Concomitant]
  5. MIYA BM [Concomitant]
  6. DEPAKENE [Concomitant]

REACTIONS (3)
  - ALANINE AMINOTRANSFERASE INCREASED [None]
  - ASPARTATE AMINOTRANSFERASE INCREASED [None]
  - HEPATIC FUNCTION ABNORMAL [None]
